FAERS Safety Report 19840225 (Version 6)
Quarter: 2022Q1

REPORT INFORMATION
  Report Type: Report from Study
  Country: US (occurrence: US)
  Receive Date: 20210915
  Receipt Date: 20220319
  Transmission Date: 20220423
  Serious: Yes (Hospitalization, Other)
  Sender: FDA-Public Use
  Company Number: NVSC2021US209212

PATIENT
  Sex: Male

DRUGS (3)
  1. ENTRESTO [Suspect]
     Active Substance: SACUBITRIL\VALSARTAN
     Indication: Product used for unknown indication
     Dosage: UNK UNK, BID
     Route: 048
  2. ROSUVASTATIN CALCIUM [Suspect]
     Active Substance: ROSUVASTATIN CALCIUM
     Indication: Product used for unknown indication
     Dosage: 40 MG, UNKNOWN
     Route: 065
  3. ROSUVASTATIN CALCIUM [Suspect]
     Active Substance: ROSUVASTATIN CALCIUM
     Dosage: 20 MG, UNKNOWN
     Route: 065

REACTIONS (11)
  - Haemorrhage [Unknown]
  - Coronary artery occlusion [Unknown]
  - Chest pain [Not Recovered/Not Resolved]
  - Scoliosis [Unknown]
  - Intervertebral disc protrusion [Unknown]
  - Pollakiuria [Unknown]
  - Back pain [Unknown]
  - Hypotension [Unknown]
  - Dizziness [Unknown]
  - Fatigue [Unknown]
  - Blood cholesterol increased [Unknown]
